FAERS Safety Report 4428838-5 (Version None)
Quarter: 2004Q3

REPORT INFORMATION
  Report Type: 
  Country: None (occurrence: None)
  Receive Date: 20040818
  Receipt Date: 20040726
  Transmission Date: 20050211
  Serious: Yes (Other)
  Sender: FDA-Public Use
  Company Number: DE-GLAXOSMITHKLINE-D0044322A

PATIENT
  Age: 57 Year
  Sex: Male

DRUGS (1)
  1. TRIZIVIR [Suspect]
     Dosage: 750MG TWICE PER DAY
     Route: 048

REACTIONS (2)
  - PYELONEPHRITIS [None]
  - RENAL PAIN [None]
